FAERS Safety Report 7674302-X (Version None)
Quarter: 2011Q3

REPORT INFORMATION
  Report Type: 
  Country: None (occurrence: None)
  Receive Date: 20110810
  Receipt Date: 20101116
  Transmission Date: 20111222
  Serious: No
  Sender: FDA-Public Use
  Company Number: US-BAUSCH-2011BL000576

PATIENT
  Age: 36 Year
  Sex: Male
  Weight: 74 kg

DRUGS (7)
  1. CROMOLYN SODIUM [Suspect]
     Indication: PRODUCT USED FOR UNKNOWN INDICATION
     Route: 045
     Dates: start: 20101116, end: 20101116
  2. MAGNESIUM [Concomitant]
     Indication: VITAMIN SUPPLEMENTATION
  3. ASCORBIC ACID [Concomitant]
     Indication: VITAMIN SUPPLEMENTATION
  4. CORTISOL TAB [Concomitant]
     Indication: PRODUCT USED FOR UNKNOWN INDICATION
  5. ZINC [Concomitant]
     Indication: VITAMIN SUPPLEMENTATION
  6. SINUSTAT /USA/ [Concomitant]
     Indication: SINUSITIS
  7. FOLIC ACID [Concomitant]
     Indication: VITAMIN SUPPLEMENTATION

REACTIONS (3)
  - NASAL CONGESTION [None]
  - HYPERSENSITIVITY [None]
  - RHINORRHOEA [None]
